FAERS Safety Report 5961628-0 (Version None)
Quarter: 2008Q4

REPORT INFORMATION
  Report Type: 
  Country: None (occurrence: None)
  Receive Date: 20081121
  Receipt Date: 20081111
  Transmission Date: 20090506
  Serious: Yes (Hospitalization)
  Sender: FDA-Public Use
  Company Number: US-WATSON-2008-06680

PATIENT
  Age: 53 Year
  Sex: Female

DRUGS (1)
  1. MORPHINE SULFATE INJ [Suspect]
     Indication: ANALGESIA
     Dosage: 17.5 MG, DAILY
     Route: 037

REACTIONS (1)
  - INFUSION SITE MASS [None]
